FAERS Safety Report 9252267 (Version 1)
Quarter: 2013Q2

REPORT INFORMATION
  Report Type: Spontaneous
  Country: US (occurrence: US)
  Receive Date: 20130424
  Receipt Date: 20130424
  Transmission Date: 20140414
  Serious: No
  Sender: FDA-Public Use
  Company Number: US-VERTEX PHARMACEUTICALS INC.-2013-005288

PATIENT
  Sex: Male

DRUGS (4)
  1. INCIVEK [Suspect]
     Indication: HEPATITIS C
     Route: 048
  2. RIBAVIRIN [Suspect]
     Indication: HEPATITIS C
     Dosage: 2 DF, QID
  3. RIBAVIRIN [Suspect]
     Dosage: 2 DF, TID
  4. PEGASYS [Suspect]
     Indication: HEPATITIS C

REACTIONS (3)
  - Rash generalised [Recovered/Resolved]
  - Oedema peripheral [Recovered/Resolved]
  - Haemoglobin decreased [Recovered/Resolved]
